FAERS Safety Report 5718773-4 (Version None)
Quarter: 2008Q2

REPORT INFORMATION
  Report Type: 
  Country: None (occurrence: None)
  Receive Date: 20080425
  Receipt Date: 20080417
  Transmission Date: 20081010
  Serious: Yes (Other)
  Sender: FDA-Public Use
  Company Number: US-PFIZER INC-2008034031

PATIENT
  Sex: Male

DRUGS (1)
  1. CELEBREX [Suspect]
     Dates: start: 19990427, end: 20050222

REACTIONS (1)
  - CARDIAC ARREST [None]
